FAERS Safety Report 5294648-2 (Version None)
Quarter: 2007Q2

REPORT INFORMATION
  Report Type: 
  Country: None (occurrence: None)
  Receive Date: 20070412
  Receipt Date: 20070405
  Transmission Date: 20071010
  Serious: Yes (Hospitalization, Other)
  Sender: FDA-Public Use
  Company Number: US-AVENTIS-200711009US

PATIENT
  Sex: Male
  Weight: 74.4 kg

DRUGS (20)
  1. LANTUS [Suspect]
     Dates: end: 20070201
  2. LANTUS [Suspect]
     Dates: start: 20070201, end: 20070215
  3. LANTUS [Suspect]
     Dates: start: 20070216
  4. HUMALOG                            /00030501/ [Concomitant]
     Dosage: DOSE: 2-8 SLIDING SCALE WITH MEALS
  5. TUMS                               /00108001/ [Concomitant]
     Route: 048
  6. PLAVIX [Concomitant]
  7. PHOSLO [Concomitant]
     Dosage: DOSE: 1 WITH MEALS
  8. NORVASC [Concomitant]
  9. LEXAPRO [Concomitant]
  10. CATAPRES-TTS-1 [Concomitant]
     Dosage: DOSE: 1 PATCH
  11. DELATESTRYL [Concomitant]
  12. PREDNISONE [Concomitant]
     Dosage: DOSE: 5MG IN AM, 2.5 MG IN PM
  13. ERYTHROMYCIN [Concomitant]
     Dosage: FREQUENCY: BEFORE MEALS
  14. PROTONIX [Concomitant]
  15. LOMOTIL                            /00034001/ [Concomitant]
     Dosage: DOSE: UNK
  16. LUNESTA [Concomitant]
  17. NEPHROCAPS                         /01041101/ [Concomitant]
     Dosage: DOSE: UNK
  18. DDAVP [Concomitant]
  19. SYNTHROID [Concomitant]
  20. LABETALOL HCL [Concomitant]

REACTIONS (5)
  - CELLULITIS [None]
  - DRUG INEFFECTIVE [None]
  - HYPERGLYCAEMIA [None]
  - HYPOGLYCAEMIA [None]
  - WHITE BLOOD CELL COUNT INCREASED [None]
